FAERS Safety Report 4761982-1 (Version None)
Quarter: 2005Q3

REPORT INFORMATION
  Report Type: 
  Country: None (occurrence: None)
  Receive Date: 20050906
  Receipt Date: 20041004
  Transmission Date: 20060218
  Serious: Yes (Other)
  Sender: FDA-Public Use
  Company Number: GB-AMGEN-UK094086

PATIENT
  Sex: Male

DRUGS (14)
  1. CINACALCET [Suspect]
     Indication: HYPERPARATHYROIDISM SECONDARY
     Route: 048
     Dates: start: 20030206, end: 20040922
  2. PARACETAMOL [Concomitant]
     Route: 048
     Dates: start: 20030206
  3. MOVICOL [Concomitant]
     Route: 048
     Dates: start: 20030206
  4. COMBIVENT [Concomitant]
  5. ZIMOVANE [Concomitant]
  6. FOLATE SODIUM [Concomitant]
  7. ALBUTEROL SULFATE HFA [Concomitant]
  8. ELANTAN - SLOW RELEASE [Concomitant]
  9. BISOPROLOL [Concomitant]
  10. RENAGEL [Concomitant]
  11. CHLORPROMAZINE [Concomitant]
  12. ASCORBIC ACID [Concomitant]
  13. VENOFER [Concomitant]
  14. EPOETIN BETA [Concomitant]

REACTIONS (4)
  - ANAEMIA [None]
  - BARRETT'S OESOPHAGUS [None]
  - IRON DEFICIENCY [None]
  - MYELODYSPLASTIC SYNDROME [None]
